FAERS Safety Report 9095108 (Version 1)
Quarter: 2013Q1

REPORT INFORMATION
  Report Type: Spontaneous
  Country: US (occurrence: None)
  Receive Date: 20130123
  Receipt Date: 20130123
  Transmission Date: 20140127
  Serious: Yes (Hospitalization)
  Sender: FDA-Public Use
  Company Number: PD 174

PATIENT
  Age: 50 Year
  Sex: Male

DRUGS (4)
  1. LEVETIRACETAM [Suspect]
     Indication: CONVULSION
     Route: 048
  2. GABAPENTIN [Concomitant]
  3. VALPROIC ACID [Concomitant]
  4. ESOMEPRAZOLE [Concomitant]

REACTIONS (8)
  - Anxiety [None]
  - Agitation [None]
  - Formication [None]
  - Pruritus [None]
  - Scratch [None]
  - Hallucination, visual [None]
  - Incorrect dose administered [None]
  - Substance-induced psychotic disorder [None]
